FAERS Safety Report 6621464-9 (Version None)
Quarter: 2010Q1

REPORT INFORMATION
  Report Type: 
  Country: None (occurrence: None)
  Receive Date: 20100309
  Receipt Date: 20100215
  Transmission Date: 20100710
  Serious: No
  Sender: FDA-Public Use
  Company Number: US-BIOGENIDEC-2010BI005247

PATIENT
  Age: 41 Year
  Sex: Female

DRUGS (2)
  1. AVONEX [Suspect]
     Indication: MULTIPLE SCLEROSIS
     Route: 030
     Dates: start: 20090718
  2. AVONEX [Suspect]
     Route: 030
     Dates: start: 20100215

REACTIONS (3)
  - PRURITUS [None]
  - RASH [None]
  - RASH MACULAR [None]
